FAERS Safety Report 15554114 (Version 1)
Quarter: 2018Q4

REPORT INFORMATION
  Report Type: Spontaneous
  Country: US (occurrence: US)
  Receive Date: 20181025
  Receipt Date: 20181025
  Transmission Date: 20190205
  Serious: Yes (Other)
  Sender: FDA-Public Use
  Company Number: None

PATIENT
  Sex: Female
  Weight: 70.2 kg

DRUGS (3)
  1. MULTIVITAMINS [Concomitant]
     Active Substance: VITAMINS
  2. LOSARTAN POTASSIUM TABLETS,USP 100 MG [Suspect]
     Active Substance: LOSARTAN POTASSIUM
     Indication: HYPERTENSION
     Dosage: ?          QUANTITY:1 TABLET(S);?
     Route: 048
     Dates: start: 20170428, end: 20181004
  3. LIPITORE [Concomitant]

REACTIONS (8)
  - Nocturia [None]
  - Muscle spasms [None]
  - Depression [None]
  - Micturition urgency [None]
  - Decreased appetite [None]
  - Pollakiuria [None]
  - Pain in extremity [None]
  - Muscle atrophy [None]
